FAERS Safety Report 7771986-2 (Version None)
Quarter: 2011Q3

REPORT INFORMATION
  Report Type: 
  Country: None (occurrence: None)
  Receive Date: 20110922
  Receipt Date: 20101012
  Transmission Date: 20111222
  Serious: No
  Sender: FDA-Public Use
  Company Number: US-ASTRAZENECA-2010SE48229

PATIENT
  Sex: Female

DRUGS (3)
  1. SEROQUEL XR [Suspect]
     Indication: PSYCHOTIC DISORDER
     Route: 048
     Dates: start: 20100101
  2. DIURETIC [Concomitant]
  3. SEROQUEL XR [Suspect]
     Route: 048

REACTIONS (3)
  - MUSCLE SPASMS [None]
  - PYREXIA [None]
  - MUSCULOSKELETAL STIFFNESS [None]
